FAERS Safety Report 10081644 (Version 1)
Quarter: 2014Q2

REPORT INFORMATION
  Report Type: Report from Study
  Country: JP (occurrence: JP)
  Receive Date: 20140416
  Receipt Date: 20140416
  Transmission Date: 20141212
  Serious: Yes (Death, Hospitalization)
  Sender: FDA-Public Use
  Company Number: JP-009507513-1404JPN002849

PATIENT
  Sex: Male

DRUGS (2)
  1. MK-2452 [Suspect]
     Indication: OPEN ANGLE GLAUCOMA
     Dosage: 2 GTT, QD
     Route: 047
     Dates: start: 20090727, end: 20091225
  2. KARY UNI [Concomitant]
     Dosage: UNK
     Route: 047

REACTIONS (1)
  - Death [Fatal]
